FAERS Safety Report 15292901 (Version 1)
Quarter: 2018Q3

REPORT INFORMATION
  Report Type: Spontaneous
  Country: US (occurrence: US)
  Receive Date: 20180806
  Receipt Date: 20180806
  Transmission Date: 20181010
  Serious: Yes (Hospitalization)
  Sender: FDA-Public Use
  Company Number: None

PATIENT
  Age: 24 Year
  Sex: Male

DRUGS (7)
  1. ENBREL [Suspect]
     Active Substance: ETANERCEPT
     Indication: PRODUCT USED FOR UNKNOWN INDICATION
     Route: 058
     Dates: start: 20180612
  2. BACLOFEN. [Concomitant]
     Active Substance: BACLOFEN
  3. CONTOUR TES [Concomitant]
  4. NOVOLOG [Concomitant]
     Active Substance: INSULIN ASPART
  5. FOLIC ACID. [Concomitant]
     Active Substance: FOLIC ACID
  6. HYOSCYSMINE [Concomitant]
  7. RANITIDINE. [Concomitant]
     Active Substance: RANITIDINE

REACTIONS (2)
  - Back pain [None]
  - Ill-defined disorder [None]

NARRATIVE: CASE EVENT DATE: 201807
